FAERS Safety Report 6138923-8 (Version None)
Quarter: 2009Q1

REPORT INFORMATION
  Report Type: 
  Country: None (occurrence: None)
  Receive Date: 20090331
  Receipt Date: 20090204
  Transmission Date: 20090719
  Serious: No
  Sender: FDA-Public Use
  Company Number: US-B.I. PHARMACEUTICALS,INC./RIDGEFIELD-2009-BP-01451BP

PATIENT
  Sex: Female

DRUGS (3)
  1. SPIRIVA [Suspect]
     Indication: EMPHYSEMA
     Dosage: 18MCG
     Route: 055
     Dates: start: 20070101, end: 20070101
  2. ASPIRIN [Concomitant]
     Indication: PROPHYLAXIS
     Dosage: 325MG
     Route: 048
  3. ASCORBIC ACID [Concomitant]
     Indication: PROPHYLAXIS
     Dosage: 1000MG
     Route: 048

REACTIONS (1)
  - EYE PAIN [None]
